FAERS Safety Report 5261418-0 (Version None)
Quarter: 2007Q1

REPORT INFORMATION
  Report Type: 
  Country: None (occurrence: None)
  Receive Date: 20070307
  Receipt Date: 20070302
  Transmission Date: 20070707
  Serious: Yes (Death)
  Sender: FDA-Public Use
  Company Number: 2007SP003243

PATIENT
  Age: 67 Year
  Sex: Male
  Weight: 75 kg

DRUGS (5)
  1. LONAFARNIB (S-P) (LONAFARNIB) [Suspect]
     Indication: GLIOMA
     Dosage: 175 MG;BID
     Dates: start: 20070112, end: 20070112
  2. LONAFARNIB (S-P) (LONAFARNIB) [Suspect]
     Indication: GLIOMA
     Dosage: 175 MG;BID
     Dates: start: 20061228
  3. TEMOZOLOMIDE (S-P) (TEMOZOLOMIDE) [Suspect]
     Indication: GLIOMA
     Dosage: 150 MG;QD;PO
     Route: 048
     Dates: start: 20070112, end: 20070112
  4. TEMOZOLOMIDE (S-P) (TEMOZOLOMIDE) [Suspect]
     Indication: GLIOMA
     Dosage: 150 MG;QD;PO
     Route: 048
     Dates: start: 20070213, end: 20070213
  5. TEMOZOLOMIDE (S-P) (TEMOZOLOMIDE) [Suspect]
     Indication: GLIOMA
     Dosage: 150 MG;QD;PO
     Route: 048
     Dates: start: 20061228

REACTIONS (3)
  - BALANCE DISORDER [None]
  - SEPTIC SHOCK [None]
  - WEIGHT DECREASED [None]
